FAERS Safety Report 7217538-4 (Version None)
Quarter: 2011Q1

REPORT INFORMATION
  Report Type: 
  Country: None (occurrence: None)
  Receive Date: 20110110
  Receipt Date: 20101231
  Transmission Date: 20110831
  Serious: Yes (Death)
  Sender: FDA-Public Use
  Company Number: US-PFIZER INC-2011003967

PATIENT
  Age: 38 Year
  Sex: Male

DRUGS (8)
  1. CAFFEINE [Suspect]
     Dosage: UNK
  2. CLONAZEPAM [Suspect]
     Dosage: UNK
  3. METAXALONE [Suspect]
     Dosage: UNK
  4. ALLOPURINOL [Suspect]
     Dosage: UNK
  5. AMLODIPINE BESYLATE AND ATORVASTATIN CALCIUM [Suspect]
     Dosage: UNK
  6. ACETAMINOPHEN [Suspect]
     Dosage: UNK
  7. ACETYLSALICYLIC ACID [Suspect]
     Dosage: UNK
  8. LAMOTRIGINE [Suspect]
     Dosage: UNK

REACTIONS (1)
  - COMPLETED SUICIDE [None]
